FAERS Safety Report 4559197-5 (Version None)
Quarter: 2005Q1

REPORT INFORMATION
  Report Type: 
  Country: None (occurrence: None)
  Receive Date: 20050124
  Receipt Date: 20050113
  Transmission Date: 20050727
  Serious: Yes (Death, Life-Threatening)
  Sender: FDA-Public Use
  Company Number: GB-JNJFOC-20050103396

PATIENT
  Age: 54 Year
  Sex: Male
  Weight: 74 kg

DRUGS (4)
  1. RISPERDAL CONSTA [Suspect]
     Indication: PSYCHOTIC DISORDER
     Route: 030
  2. RISPERDAL CONSTA [Suspect]
     Route: 030
  3. DICLOFENAC [Concomitant]
     Indication: ARTHRITIS
     Route: 049
  4. AMOXICILLIN [Concomitant]
     Indication: LOWER RESPIRATORY TRACT INFECTION
     Route: 049

REACTIONS (2)
  - ATHEROSCLEROSIS [None]
  - MYOCARDIAL INFARCTION [None]
